FAERS Safety Report 7711670-4 (Version None)
Quarter: 2011Q3

REPORT INFORMATION
  Report Type: 
  Country: None (occurrence: None)
  Receive Date: 20110822
  Receipt Date: 20110811
  Transmission Date: 20111222
  Serious: Yes (Death, Hospitalization)
  Sender: FDA-Public Use
  Company Number: 2011SP035557

PATIENT
  Age: 53 Year
  Sex: Female
  Weight: 65.2 kg

DRUGS (4)
  1. CILENGITIDE [Concomitant]
  2. TEMODAL [Suspect]
  3. TEMODAL [Suspect]
  4. TEMODAL [Suspect]
     Indication: BRAIN NEOPLASM
     Dosage: 130 MG;QD;PO
     Route: 048
     Dates: start: 20110620, end: 20110718

REACTIONS (2)
  - PANCYTOPENIA [None]
  - BONE MARROW FAILURE [None]
